FAERS Safety Report 6160418-6 (Version None)
Quarter: 2009Q2

REPORT INFORMATION
  Report Type: 
  Country: None (occurrence: None)
  Receive Date: 20090420
  Receipt Date: 20090415
  Transmission Date: 20091009
  Serious: Yes (Other)
  Sender: FDA-Public Use
  Company Number: US-RB-014433-09

PATIENT
  Age: 30 Year
  Sex: Male

DRUGS (3)
  1. SUBOXONE [Suspect]
     Route: 060
     Dates: start: 20090414
  2. PROVENTIL GENTLEHALER [Concomitant]
     Indication: ASTHMA
     Dosage: PUFFS AS NEEDED
     Route: 055
     Dates: start: 19980101
  3. VITAMIN [Concomitant]
     Indication: GENERAL PHYSICAL HEALTH DETERIORATION
     Dosage: DOSING INFORMATION UNKNOWN
     Route: 048

REACTIONS (2)
  - SUICIDAL IDEATION [None]
  - VOMITING [None]
